FAERS Safety Report 15331967 (Version 3)
Quarter: 2018Q3

REPORT INFORMATION
  Report Type: Spontaneous
  Country: JP (occurrence: JP)
  Receive Date: 20180829
  Receipt Date: 20180917
  Transmission Date: 20181010
  Serious: Yes (Hospitalization, Other)
  Sender: FDA-Public Use
  Company Number: PHHY2018JP079049

PATIENT
  Age: 35 Year
  Sex: Female

DRUGS (3)
  1. IMUSERA [Suspect]
     Active Substance: FINGOLIMOD HYDROCHLORIDE
     Indication: MULTIPLE SCLEROSIS
     Dosage: UNK
     Route: 048
  2. AZATHIOPRINE. [Suspect]
     Active Substance: AZATHIOPRINE
     Indication: MULTIPLE SCLEROSIS RELAPSE
     Dosage: 50 MG, UNK
     Route: 065
  3. NATALIZUMABUM [Concomitant]
     Indication: MULTIPLE SCLEROSIS RELAPSE
     Route: 065

REACTIONS (12)
  - Paraparesis [Recovered/Resolved]
  - Rebound effect [Recovered/Resolved]
  - Multiple sclerosis relapse [Recovered/Resolved]
  - Quadriparesis [Recovered/Resolved]
  - Mood swings [Recovered/Resolved]
  - Urinary incontinence [Recovered/Resolved]
  - Anal incontinence [Recovered/Resolved]
  - Lymphopenia [Recovered/Resolved]
  - Dysarthria [Recovered/Resolved]
  - Band sensation [Recovered/Resolved]
  - Dysaesthesia [Recovered/Resolved]
  - Treatment failure [Recovered/Resolved]
